FAERS Safety Report 7606980-5 (Version None)
Quarter: 2011Q3

REPORT INFORMATION
  Report Type: 
  Country: None (occurrence: None)
  Receive Date: 20110713
  Receipt Date: 20110712
  Transmission Date: 20111222
  Serious: Yes (Hospitalization, Other)
  Sender: FDA-Public Use
  Company Number: IL-PFIZER INC-2011152041

PATIENT
  Age: 63 Year
  Sex: Female

DRUGS (2)
  1. VARENICLINE TARTRATE [Suspect]
     Indication: SMOKING CESSATION THERAPY
     Dosage: UNK
     Dates: start: 20110301
  2. ATORVASTATIN [Suspect]
     Indication: HYPERLIPIDAEMIA
     Dosage: UNK
     Dates: start: 20110101

REACTIONS (6)
  - TRANSAMINASES INCREASED [None]
  - URETERIC CANCER [None]
  - DECREASED APPETITE [None]
  - ABDOMINAL PAIN UPPER [None]
  - PYREXIA [None]
  - VOMITING [None]
